FAERS Safety Report 8922809 (Version 2)
Quarter: 2013Q1

REPORT INFORMATION
  Report Type: Spontaneous
  Country: US (occurrence: US)
  Receive Date: 20121123
  Receipt Date: 20130110
  Transmission Date: 20140127
  Serious: No
  Sender: FDA-Public Use
  Company Number: US-PFIZER INC-2012291580

PATIENT
  Age: 62 Year
  Sex: Female

DRUGS (9)
  1. LIPITOR [Suspect]
     Dosage: UNK
  2. ATORVASTATIN CALCIUM [Suspect]
     Indication: DYSLIPIDAEMIA
     Dosage: UNK
  3. CODEINE [Suspect]
     Dosage: UNK
  4. METFORMIN [Suspect]
     Dosage: UNK
  5. SIMVASTATIN [Suspect]
     Dosage: UNK
  6. METHADONE [Suspect]
     Dosage: UNK
  7. VALTREX [Suspect]
     Dosage: UNK
  8. TRAMADOL [Suspect]
     Dosage: UNK
  9. YEAST [Suspect]
     Dosage: UNK

REACTIONS (2)
  - Myalgia [Recovered/Resolved]
  - Drug hypersensitivity [Unknown]
